FAERS Safety Report 15507981 (Version 1)
Quarter: 2018Q4

REPORT INFORMATION
  Report Type: Spontaneous
  Country: US (occurrence: US)
  Receive Date: 20181016
  Receipt Date: 20181016
  Transmission Date: 20190205
  Serious: Yes (Death, Other)
  Sender: FDA-Public Use
  Company Number: US-BAXTER-2018BAX025545

PATIENT
  Age: 57 Year
  Sex: Female

DRUGS (2)
  1. DIANEAL LOW CALCIUM PERITONEAL DIALYSIS SOLUTION WITH DEXTROSE [Suspect]
     Active Substance: CALCIUM CHLORIDE\DEXTROSE\MAGNESIUM CHLORIDE\SODIUM CHLORIDE\SODIUM LACTATE
     Indication: PERITONEAL DIALYSIS
     Dosage: ALTERNATE BETWEEN DIANEAL 1.5% AND 2.5% VIA CYCLER FOR 7 DAYS A WEEK
     Route: 033
     Dates: end: 201808
  2. DIANEAL LOW CALCIUM PERITONEAL DIALYSIS SOLUTION WITH DEXTROSE [Suspect]
     Active Substance: CALCIUM CHLORIDE\DEXTROSE\MAGNESIUM CHLORIDE\SODIUM CHLORIDE\SODIUM LACTATE
     Indication: PERITONEAL DIALYSIS
     Dosage: ALTERNATE BETWEEN DIANEAL 1.5% AND 2.5% VIA CYCLER FOR 7 DAYS A WEEK
     Route: 033
     Dates: end: 201808

REACTIONS (4)
  - Peritonitis bacterial [Recovered/Resolved]
  - Death [Fatal]
  - Gastrointestinal haemorrhage [Unknown]
  - Peritoneal dialysis complication [Recovered/Resolved]

NARRATIVE: CASE EVENT DATE: 201805
